FAERS Safety Report 13569543 (Version 2)
Quarter: 2017Q4

REPORT INFORMATION
  Report Type: Spontaneous
  Country: CA (occurrence: CA)
  Receive Date: 20170522
  Receipt Date: 20171115
  Transmission Date: 20180320
  Serious: Yes (Disabling, Other)
  Sender: FDA-Public Use
  Company Number: CA-SA-2017SA086267

PATIENT
  Age: 47 Year
  Sex: Male
  Weight: 89 kg

DRUGS (11)
  1. METHOTREXATE SODIUM. [Suspect]
     Active Substance: METHOTREXATE SODIUM
     Indication: RHEUMATOID ARTHRITIS
     Route: 058
  2. LEFLUNOMIDE. [Concomitant]
     Active Substance: LEFLUNOMIDE
     Route: 065
  3. METHOTREXATE SODIUM. [Suspect]
     Active Substance: METHOTREXATE SODIUM
     Indication: RHEUMATOID ARTHRITIS
     Route: 048
  4. ENBREL [Suspect]
     Active Substance: ETANERCEPT
     Indication: RHEUMATOID ARTHRITIS
     Route: 065
     Dates: start: 20031014, end: 20091013
  5. HYDROXYCHLOROQUINE [Suspect]
     Active Substance: HYDROXYCHLOROQUINE
     Indication: RHEUMATOID ARTHRITIS
     Route: 065
  6. ARAVA [Suspect]
     Active Substance: LEFLUNOMIDE
     Indication: RHEUMATOID ARTHRITIS
     Route: 048
  7. HUMIRA [Suspect]
     Active Substance: ADALIMUMAB
     Dosage: FORM: SOLUTION SUBCUTANEOUS
     Route: 065
  8. NAPROSYN [Concomitant]
     Active Substance: NAPROXEN
     Route: 048
  9. ANAKINRA [Suspect]
     Active Substance: ANAKINRA
     Indication: RHEUMATOID ARTHRITIS
     Route: 065
  10. ORENCIA [Suspect]
     Active Substance: ABATACEPT
     Route: 065
  11. RITUXIMAB. [Suspect]
     Active Substance: RITUXIMAB
     Indication: RHEUMATOID ARTHRITIS
     Route: 065

REACTIONS (13)
  - Abdominal discomfort [Recovering/Resolving]
  - Drug intolerance [Unknown]
  - Sleep disorder [Unknown]
  - Condition aggravated [Recovering/Resolving]
  - Musculoskeletal pain [Recovering/Resolving]
  - Pain [Recovered/Resolved]
  - Disability [Unknown]
  - Joint stiffness [Recovering/Resolving]
  - Rheumatoid arthritis [Unknown]
  - Drug effect decreased [Unknown]
  - Drug ineffective [Unknown]
  - Acne cystic [Unknown]
  - Drug effect incomplete [Unknown]
